FAERS Safety Report 4955856-0 (Version None)
Quarter: 2006Q1

REPORT INFORMATION
  Report Type: 
  Country: None (occurrence: None)
  Receive Date: 20060327
  Receipt Date: 20060327
  Transmission Date: 20060701
  Serious: Yes (Hospitalization)
  Sender: FDA-Public Use
  Company Number: None

PATIENT
  Age: 63 Year
  Sex: Female
  Weight: 73 kg

DRUGS (6)
  1. DOCETAXEL 75 MG/M2 (DOXORUBICIN 50 MG/M2/CYTOXAN 500 MG/M2 [Suspect]
     Indication: BREAST CANCER
     Dosage: Q 3 WKS IV
     Route: 042
     Dates: start: 20060310
  2. BEVACIZUMAB [Suspect]
     Indication: BREAST CANCER
     Dosage: 7.5 MG /KG Q3WK IV
     Route: 042
     Dates: start: 20060217
  3. PLACEBO [Suspect]
  4. NEUPOGEN [Concomitant]
  5. CARSYDYT MOUTHWASH [Concomitant]
  6. MYCOSTATIN [Concomitant]

REACTIONS (2)
  - FEBRILE NEUTROPENIA [None]
  - RESPIRATORY TRACT INFECTION [None]
